FAERS Safety Report 8976617 (Version 2)
Quarter: 2012Q4

REPORT INFORMATION
  Report Type: 
  Country: IT (occurrence: IT)
  Receive Date: 20121220
  Receipt Date: 20121226
  Transmission Date: 20130627
  Serious: Yes (Other)
  Sender: FDA-Public Use
  Company Number: IT-PFIZER INC-2012321534

PATIENT
  Age: 72 Year
  Sex: Female

DRUGS (1)
  1. SUTENT [Suspect]
     Indication: PRIMITIVE NEUROECTODERMAL TUMOUR
     Dosage: UNK
     Dates: start: 20120910

REACTIONS (2)
  - Bone marrow toxicity [Unknown]
  - Hypertension [Unknown]
